FAERS Safety Report 9137846 (Version 3)
Quarter: 2013Q2

REPORT INFORMATION
  Report Type: Report from Study
  Country: US (occurrence: US)
  Receive Date: 20130304
  Receipt Date: 20130404
  Transmission Date: 20140414
  Serious: Yes (Hospitalization, Other)
  Sender: FDA-Public Use
  Company Number: US-ABBOTT-13P-163-1054944-00

PATIENT
  Age: 52 Year
  Sex: Female

DRUGS (11)
  1. HUMIRA [Suspect]
     Indication: RHEUMATOID ARTHRITIS
  2. HUMIRA [Suspect]
     Dates: start: 20130327
  3. UNKNOWN ANTIBIOTICS [Suspect]
     Indication: CARDIAC INFECTION
  4. METHOTREXATE [Concomitant]
     Indication: RHEUMATOID ARTHRITIS
  5. PLAQUENIL [Concomitant]
     Indication: RHEUMATOID ARTHRITIS
  6. SIMVASTATIN [Concomitant]
     Indication: BLOOD CHOLESTEROL INCREASED
  7. PERCOCET [Concomitant]
     Indication: ARTHRALGIA
     Dosage: 10/750, 1 TAB EVERY 6 HOURS AS NEEDED
  8. SOMA [Concomitant]
     Indication: ARTHRALGIA
  9. XANAX [Concomitant]
     Indication: ANXIETY
     Dosage: 2 MG, 1 TAB EVERY 4 HOURS, AS NEEDED
  10. COMBIVENT INHALER [Concomitant]
     Indication: PRODUCT USED FOR UNKNOWN INDICATION
     Dosage: DAILY
  11. ALBUTEROL INHALER [Concomitant]
     Indication: PRODUCT USED FOR UNKNOWN INDICATION

REACTIONS (11)
  - Gallbladder oedema [Recovered/Resolved]
  - Skin papilloma [Not Recovered/Not Resolved]
  - Chronic obstructive pulmonary disease [Unknown]
  - Aortitis [Recovered/Resolved]
  - Pain in extremity [Recovered/Resolved]
  - Cardiac infection [Unknown]
  - Arthralgia [Recovered/Resolved]
  - Abdominal discomfort [Unknown]
  - Sinusitis [Recovering/Resolving]
  - Cholecystitis [None]
  - Neoplasm skin [None]
